FAERS Safety Report 24342434 (Version 2)
Quarter: 2024Q4

REPORT INFORMATION
  Report Type: Spontaneous
  Country: US (occurrence: US)
  Receive Date: 20240920
  Receipt Date: 20241010
  Transmission Date: 20250115
  Serious: Yes (Other)
  Sender: BIOGEN
  Company Number: US-BIOGEN-2024BI01282629

PATIENT
  Sex: Female

DRUGS (4)
  1. ZURZUVAE [Suspect]
     Active Substance: ZURANOLONE
     Indication: Perinatal depression
     Route: 050
     Dates: start: 20240624, end: 20240701
  2. LEXAPRO [Concomitant]
     Active Substance: ESCITALOPRAM OXALATE
     Indication: Post-traumatic stress disorder
     Route: 050
     Dates: end: 202407
  3. RISPERIDONE [Concomitant]
     Active Substance: RISPERIDONE
     Indication: Post-traumatic stress disorder
     Route: 050
  4. TRAZODONE [Concomitant]
     Active Substance: TRAZODONE HYDROCHLORIDE
     Indication: Product used for unknown indication
     Dosage: PRN
     Route: 050

REACTIONS (3)
  - Suicidal ideation [Recovered/Resolved]
  - Hallucination, auditory [Recovered/Resolved]
  - Panic attack [Not Recovered/Not Resolved]

NARRATIVE: CASE EVENT DATE: 20240101
